FAERS Safety Report 6644657-3 (Version None)
Quarter: 2010Q1

REPORT INFORMATION
  Report Type: 
  Country: None (occurrence: None)
  Receive Date: 20100322
  Receipt Date: 20100309
  Transmission Date: 20100710
  Serious: Yes (Hospitalization, Other)
  Sender: FDA-Public Use
  Company Number: US-MERCK-0701USA03890

PATIENT
  Age: 45 Year
  Sex: Female
  Weight: 61 kg

DRUGS (13)
  1. FOSAMAX [Suspect]
     Indication: OSTEOPOROSIS
     Route: 048
     Dates: start: 20040621, end: 20060323
  2. XANAX [Concomitant]
     Indication: ANXIETY
     Route: 065
     Dates: start: 19980101
  3. VICODIN ES [Concomitant]
     Indication: PAIN
     Route: 065
     Dates: start: 20041006
  4. LASIX [Concomitant]
     Indication: FLUID RETENTION
     Route: 065
     Dates: start: 19950614
  5. POTASSIUM (UNSPECIFIED) [Concomitant]
     Indication: BLOOD POTASSIUM DECREASED
     Route: 065
     Dates: start: 19950614
  6. SINGULAIR [Concomitant]
     Indication: ASTHMA
     Route: 048
     Dates: start: 20030101
  7. ALLOPURINOL [Concomitant]
     Indication: GOUT
     Route: 065
     Dates: start: 20010101
  8. DIFFERIN [Concomitant]
     Indication: ACNE
     Route: 065
     Dates: start: 20040101, end: 20060301
  9. CORGARD [Concomitant]
     Indication: MITRAL VALVE PROLAPSE
     Route: 065
     Dates: start: 20030101
  10. COMBIVENT [Concomitant]
     Indication: ASTHMA
     Route: 065
     Dates: start: 20010101
  11. LEVOXYL [Concomitant]
     Indication: THYROID CYST
     Route: 065
     Dates: start: 20030101
  12. MAXALT [Concomitant]
     Indication: MIGRAINE
     Route: 065
     Dates: start: 20040101
  13. BENZOYL PEROXIDE AND ERYTHROMYCIN [Concomitant]
     Indication: ACNE
     Route: 065
     Dates: start: 20030328, end: 20050101

REACTIONS (40)
  - ABSCESS JAW [None]
  - ACTINOMYCOSIS [None]
  - ADVERSE DRUG REACTION [None]
  - ANXIETY [None]
  - ASTHMA [None]
  - CELLULITIS [None]
  - DENTAL CARIES [None]
  - DEPRESSION [None]
  - DEVICE RELATED INFECTION [None]
  - FACIAL PAIN [None]
  - FRACTURE [None]
  - GINGIVAL BLEEDING [None]
  - GINGIVAL DISORDER [None]
  - GINGIVAL INFECTION [None]
  - GLOSSITIS [None]
  - HYPOAESTHESIA ORAL [None]
  - IMPAIRED HEALING [None]
  - INJURY [None]
  - INSOMNIA [None]
  - JAW DISORDER [None]
  - LEUKOCYTOSIS [None]
  - MOUTH INJURY [None]
  - NEPHROLITHIASIS [None]
  - ORAL DISORDER [None]
  - ORAL INFECTION [None]
  - OSTEOMYELITIS [None]
  - OSTEONECROSIS [None]
  - PARAESTHESIA ORAL [None]
  - POST PROCEDURAL COMPLICATION [None]
  - POSTOPERATIVE ABSCESS [None]
  - POSTOPERATIVE WOUND INFECTION [None]
  - RHINITIS [None]
  - SINUSITIS [None]
  - SKIN LESION [None]
  - TEMPOROMANDIBULAR JOINT SYNDROME [None]
  - TRIGEMINAL NEURALGIA [None]
  - TRISMUS [None]
  - UPPER RESPIRATORY TRACT INFECTION [None]
  - WISDOM TEETH REMOVAL [None]
  - WOUND INFECTION [None]
